FAERS Safety Report 9696396 (Version 2)
Quarter: 2013Q4

REPORT INFORMATION
  Report Type: Report from Study
  Country: US (occurrence: US)
  Receive Date: 20131119
  Receipt Date: 20131127
  Transmission Date: 20140711
  Serious: Yes (Death)
  Sender: FDA-Public Use
  Company Number: US-ACTELION-A-NJ2013-91090

PATIENT
  Age: 65 Year
  Sex: Male

DRUGS (3)
  1. TRACLEER [Suspect]
     Indication: PULMONARY HYPERTENSION
     Dosage: UNK
     Route: 048
     Dates: start: 20100505, end: 20131104
  2. SILDENAFIL [Concomitant]
  3. TYVASO [Concomitant]

REACTIONS (1)
  - Death [Fatal]
